FAERS Safety Report 6449144-3 (Version None)
Quarter: 2009Q4

REPORT INFORMATION
  Report Type: 
  Country: None (occurrence: None)
  Receive Date: 20091120
  Receipt Date: 20091109
  Transmission Date: 20100525
  Serious: Yes (Hospitalization, Other)
  Sender: FDA-Public Use
  Company Number: US-MERCK-0904USA03008

PATIENT
  Age: 57 Year
  Sex: Female

DRUGS (7)
  1. FOSAMAX [Suspect]
     Route: 048
     Dates: start: 19960101, end: 20070101
  2. PREMARIN [Concomitant]
     Route: 065
     Dates: start: 19860101
  3. ALPRAZOLAM [Concomitant]
     Route: 065
     Dates: start: 19800101
  4. FUROSEMIDE [Concomitant]
     Route: 065
     Dates: start: 19800101
  5. FOLIC ACID [Concomitant]
     Route: 065
     Dates: start: 19850101
  6. METHOTREXATE [Concomitant]
     Route: 065
     Dates: start: 19800101
  7. TEMAZEPAM [Concomitant]
     Route: 065
     Dates: start: 19890101

REACTIONS (36)
  - ABSCESS [None]
  - ALVEOLAR OSTEITIS [None]
  - ANKLE FRACTURE [None]
  - ANXIETY [None]
  - ARTHROPATHY [None]
  - CARDIAC FAILURE CONGESTIVE [None]
  - CHRONIC SINUSITIS [None]
  - DENTAL CARIES [None]
  - DEPRESSION [None]
  - EDENTULOUS [None]
  - EXOSTOSIS [None]
  - GINGIVAL BLEEDING [None]
  - GINGIVAL DISORDER [None]
  - HYPOAESTHESIA FACIAL [None]
  - IMPAIRED HEALING [None]
  - JAW CYST [None]
  - JAW DISORDER [None]
  - JOINT DISLOCATION [None]
  - LETHARGY [None]
  - LOSS OF CONSCIOUSNESS [None]
  - MALAISE [None]
  - OSTEITIS [None]
  - OSTEOMYELITIS [None]
  - OSTEOMYELITIS CHRONIC [None]
  - OSTEONECROSIS [None]
  - OSTEOPOROSIS [None]
  - PAIN [None]
  - PANCREATITIS [None]
  - PARAESTHESIA [None]
  - RENAL FAILURE [None]
  - SCLERODERMA [None]
  - SYNOVITIS [None]
  - TEMPOROMANDIBULAR JOINT SYNDROME [None]
  - TOOTH FRACTURE [None]
  - TRISMUS [None]
  - ULCER HAEMORRHAGE [None]
